FAERS Safety Report 10268736 (Version 1)
Quarter: 2014Q2

REPORT INFORMATION
  Report Type: Spontaneous
  Country: TW (occurrence: TW)
  Receive Date: 20140630
  Receipt Date: 20140630
  Transmission Date: 20141212
  Serious: Yes (Death)
  Sender: FDA-Public Use
  Company Number: TW-BAXTER-2014BAX034015

PATIENT
  Sex: Female

DRUGS (2)
  1. DIANEAL LOW CALCIUM (2.5MEQ/L) PERITONEAL  DIALYSIS SOLUTION WITH 1.5% [Suspect]
     Indication: PERITONEAL DIALYSIS
     Route: 033
  2. DIANEAL LOW CALCIUM (2.5MEQ/L) PERITONEAL DIALYSIS SOLUTION WITH 2.5 P [Suspect]
     Indication: PERITONEAL DIALYSIS
     Route: 033

REACTIONS (1)
  - Death [Fatal]
